FAERS Safety Report 24752533 (Version 1)
Quarter: 2024Q4

REPORT INFORMATION
  Report Type: Spontaneous
  Country: US (occurrence: US)
  Receive Date: 20241219
  Receipt Date: 20241219
  Transmission Date: 20250115
  Serious: No
  Sender: BRISTOL-MYERS SQUIBB COMPANY
  Company Number: US-BRISTOL-MYERS SQUIBB COMPANY-2024-196978

PATIENT
  Age: 4 Decade
  Sex: Female

DRUGS (2)
  1. COBENFY [Suspect]
     Active Substance: TROSPIUM CHLORIDE\XANOMELINE
     Indication: Schizophrenia
     Dosage: 100 MG/20 MG
     Route: 048
  2. COBENFY [Suspect]
     Active Substance: TROSPIUM CHLORIDE\XANOMELINE
     Dosage: 50 MG/20 MG
     Route: 048

REACTIONS (3)
  - Tachycardia [Unknown]
  - Nausea [Unknown]
  - Vomiting [Unknown]

NARRATIVE: CASE EVENT DATE: 20241217
